FAERS Safety Report 5934391-7 (Version None)
Quarter: 2008Q4

REPORT INFORMATION
  Report Type: 
  Country: None (occurrence: None)
  Receive Date: 20081029
  Receipt Date: 20081023
  Transmission Date: 20090506
  Serious: Yes (Hospitalization, Disabling, Other)
  Sender: FDA-Public Use
  Company Number: PHHY2008NL24912

PATIENT
  Sex: Male
  Weight: 110 kg

DRUGS (2)
  1. RITALIN [Suspect]
     Indication: ATTENTION DEFICIT/HYPERACTIVITY DISORDER
     Dosage: 1DD10MG
     Dates: start: 19950101, end: 19960101
  2. PAROXETINE HCL [Suspect]
     Indication: DEPRESSION
     Dosage: 2DD20MG
     Dates: start: 19960101

REACTIONS (4)
  - DEPRESSION [None]
  - DRUG ABUSE [None]
  - FLAT AFFECT [None]
  - MENTAL IMPAIRMENT [None]
